FAERS Safety Report 6379508-8 (Version None)
Quarter: 2009Q3

REPORT INFORMATION
  Report Type: 
  Country: None (occurrence: None)
  Receive Date: 20090928
  Receipt Date: 20090917
  Transmission Date: 20100115
  Serious: Yes (Other)
  Sender: FDA-Public Use
  Company Number: CH-JNJFOC-20090902599

PATIENT
  Age: 58 Year
  Sex: Male
  Weight: 80 kg

DRUGS (9)
  1. REMICADE [Suspect]
     Route: 042
     Dates: start: 20051218, end: 20090901
  2. REMICADE [Suspect]
     Indication: PSORIASIS
     Route: 042
     Dates: start: 20051218, end: 20090901
  3. REMICADE [Suspect]
     Indication: PSORIATIC ARTHROPATHY
     Dosage: 24 INFUSIONS
     Route: 042
     Dates: start: 20051218, end: 20090901
  4. COTRIM [Interacting]
     Indication: URINARY TRACT INFECTION
  5. COTRIM [Interacting]
     Indication: RESPIRATORY TRACT INFECTION
  6. METHOTREXATE [Concomitant]
     Indication: PSORIATIC ARTHROPATHY
  7. CONCOR [Concomitant]
     Indication: HYPERTENSION
  8. CITALOPRAM HYDROBROMIDE [Concomitant]
     Indication: DEPRESSION
  9. ACIDUM FOLICUM [Concomitant]
     Indication: PROPHYLAXIS

REACTIONS (13)
  - CHEST PAIN [None]
  - DRUG INTERACTION [None]
  - DYSPNOEA [None]
  - ERYTHEMA [None]
  - HEADACHE [None]
  - HYPERSENSITIVITY [None]
  - HYPERTENSION [None]
  - INFUSION RELATED REACTION [None]
  - PALPITATIONS [None]
  - PRURITUS [None]
  - RASH [None]
  - RESPIRATORY TRACT INFECTION [None]
  - URINARY TRACT INFECTION [None]
